FAERS Safety Report 7316004-5 (Version None)
Quarter: 2011Q1

REPORT INFORMATION
  Report Type: 
  Country: None (occurrence: None)
  Receive Date: 20110225
  Receipt Date: 20110215
  Transmission Date: 20110831
  Serious: Yes (Hospitalization, Other)
  Sender: FDA-Public Use
  Company Number: PHHY2011US12615

PATIENT
  Sex: Male

DRUGS (1)
  1. MYFORTIC [Suspect]
     Dosage: 360 MG, BID
     Route: 048

REACTIONS (4)
  - FLUID RETENTION [None]
  - HEARING IMPAIRED [None]
  - ULCER [None]
  - CYTOMEGALOVIRUS INFECTION [None]
